FAERS Safety Report 13930418 (Version 3)
Quarter: 2017Q3

REPORT INFORMATION
  Report Type: Report from Study
  Country: CA (occurrence: CA)
  Receive Date: 20170901
  Receipt Date: 20170918
  Transmission Date: 20171127
  Serious: Yes (Other)
  Sender: FDA-Public Use
  Company Number: CA-REGENERON PHARMACEUTICALS, INC.-2017-20981

PATIENT

DRUGS (1)
  1. EYLEA [Suspect]
     Active Substance: AFLIBERCEPT
     Indication: NEOVASCULAR AGE-RELATED MACULAR DEGENERATION
     Dosage: UNK
     Dates: start: 20160811

REACTIONS (2)
  - Staphylococcal infection [Unknown]
  - West Nile viral infection [Not Recovered/Not Resolved]

NARRATIVE: CASE EVENT DATE: 20170906
